FAERS Safety Report 21415957 (Version 3)
Quarter: 2022Q4

REPORT INFORMATION
  Report Type: Report from Study
  Country: TR (occurrence: None)
  Receive Date: 20221006
  Receipt Date: 20221011
  Transmission Date: 20230113
  Serious: Yes (Hospitalization)
  Sender: FDA-Public Use
  Company Number: TR-Eisai Medical Research-EC-2022-125083

PATIENT
  Age: 47 Year
  Sex: Female
  Weight: 47.6 kg

DRUGS (15)
  1. LENVATINIB [Suspect]
     Active Substance: LENVATINIB
     Indication: Clear cell renal cell carcinoma
     Route: 048
     Dates: start: 20210714, end: 20220928
  2. PEMBROLIZUMAB [Suspect]
     Active Substance: PEMBROLIZUMAB
     Indication: Clear cell renal cell carcinoma
     Route: 041
     Dates: start: 20210714, end: 20220907
  3. BELZUTIFAN [Suspect]
     Active Substance: BELZUTIFAN
     Indication: Clear cell renal cell carcinoma
     Route: 048
     Dates: start: 20210714, end: 20220928
  4. FENTANYL [Concomitant]
     Active Substance: FENTANYL
     Dates: start: 20210826
  5. NORVASC [Concomitant]
     Active Substance: AMLODIPINE BESYLATE
     Dates: start: 20210928
  6. ZOLEDRONIC ACID [Concomitant]
     Active Substance: ZOLEDRONIC ACID
     Route: 042
     Dates: start: 20211006
  7. PAROL [Concomitant]
     Active Substance: ACETAMINOPHEN
     Dates: start: 202109
  8. TANTUM [BENZYDAMINE HYDROCHLORIDE] [Concomitant]
     Dates: start: 20220101
  9. TRAMADOL HYDROCHLORIDE [Concomitant]
     Active Substance: TRAMADOL HYDROCHLORIDE
     Dates: start: 20220309
  10. PANOCER [Concomitant]
     Dates: start: 20220316
  11. METOCLOPRAMIDE [Concomitant]
     Active Substance: METOCLOPRAMIDE
     Dates: start: 20220809
  12. SECITA [Concomitant]
     Dates: start: 20220901
  13. MIRTAZAPINE [Concomitant]
     Active Substance: MIRTAZAPINE
     Dates: start: 20220901
  14. LOPERAMIDE [Concomitant]
     Active Substance: LOPERAMIDE
     Dates: start: 20220920
  15. REFLOR [SACCHAROMYCES BOULARDII] [Concomitant]
     Dates: start: 20220922

REACTIONS (1)
  - Hypokalaemia [Recovered/Resolved]

NARRATIVE: CASE EVENT DATE: 20220929
